FAERS Safety Report 12847210 (Version 2)
Quarter: 2016Q4

REPORT INFORMATION
  Report Type: Other
  Country: ES (occurrence: ES)
  Receive Date: 20161014
  Receipt Date: 20161122
  Transmission Date: 20170207
  Serious: Yes (Other)
  Sender: FDA-Public Use
  Company Number: ES-UNITED THERAPEUTICS-UNT-2016-015763

PATIENT
  Age: 63 Year
  Sex: Male

DRUGS (2)
  1. TYVASO [Suspect]
     Active Substance: TREPROSTINIL
     Indication: PULMONARY ARTERIAL HYPERTENSION
     Dosage: 54 ?G, QID
     Dates: start: 20160519, end: 20161003
  2. TYVASO [Suspect]
     Active Substance: TREPROSTINIL
     Indication: SCLERODERMA

REACTIONS (3)
  - Pulmonary veno-occlusive disease [Unknown]
  - Off label use [Unknown]
  - Non-cardiogenic pulmonary oedema [Recovered/Resolved]

NARRATIVE: CASE EVENT DATE: 2016
